FAERS Safety Report 25437868 (Version 1)
Quarter: 2025Q2

REPORT INFORMATION
  Report Type: Spontaneous
  Country: US (occurrence: US)
  Receive Date: 20250616
  Receipt Date: 20250616
  Transmission Date: 20250717
  Serious: No
  Sender: ENDO
  Company Number: US-ENDO USA, INC.-2024-050697

PATIENT
  Sex: Female

DRUGS (6)
  1. SUPPRELIN LA [Suspect]
     Active Substance: HISTRELIN ACETATE
     Indication: Precocious puberty
     Route: 058
     Dates: start: 20230929
  2. SUPPRELIN LA [Suspect]
     Active Substance: HISTRELIN ACETATE
     Indication: Precocious puberty
     Route: 058
     Dates: start: 20230929
  3. SUPPRELIN LA [Suspect]
     Active Substance: HISTRELIN ACETATE
     Indication: Precocious puberty
     Route: 058
     Dates: start: 20230929
  4. SUPPRELIN LA [Suspect]
     Active Substance: HISTRELIN ACETATE
     Route: 058
     Dates: start: 20220928, end: 20230929
  5. SUPPRELIN LA [Suspect]
     Active Substance: HISTRELIN ACETATE
     Route: 058
     Dates: start: 20220928, end: 20230929
  6. SUPPRELIN LA [Suspect]
     Active Substance: HISTRELIN ACETATE
     Route: 058
     Dates: start: 20220928, end: 20230929

REACTIONS (4)
  - Drug ineffective [Not Recovered/Not Resolved]
  - Complication of device removal [Not Recovered/Not Resolved]
  - Incorrect product administration duration [Not Recovered/Not Resolved]
  - Device dislocation [Not Recovered/Not Resolved]

NARRATIVE: CASE EVENT DATE: 20241001
